FAERS Safety Report 22349196 (Version 1)
Quarter: 2023Q2

REPORT INFORMATION
  Report Type: Spontaneous
  Country: IT (occurrence: IT)
  Receive Date: 20230522
  Receipt Date: 20230522
  Transmission Date: 20230721
  Serious: Yes (Hospitalization, Other)
  Sender: FDA-Public Use
  Company Number: IT-COSETTE-CP2023IT000095

PATIENT
  Age: 53 Year
  Sex: Male

DRUGS (2)
  1. BENICAR [Suspect]
     Active Substance: OLMESARTAN MEDOXOMIL
     Indication: Hypertension
     Route: 065
  2. TUROCTOCOG ALFA [Concomitant]
     Active Substance: TUROCTOCOG ALFA
     Dosage: 4000 UI
     Route: 065

REACTIONS (2)
  - Carotid artery dissection [Recovered/Resolved]
  - Renal failure [Unknown]
